FAERS Safety Report 23171009 (Version 3)
Quarter: 2024Q2

REPORT INFORMATION
  Report Type: Report from Study
  Country: US (occurrence: US)
  Receive Date: 20231110
  Receipt Date: 20240413
  Transmission Date: 20240716
  Serious: No
  Sender: FDA-Public Use
  Company Number: US-AstraZeneca-CH-00504785A

PATIENT
  Sex: Male

DRUGS (1)
  1. ULTOMIRIS [Suspect]
     Active Substance: RAVULIZUMAB-CWVZ
     Indication: Myasthenia gravis
     Dosage: 3300 MILLIGRAM
     Route: 042

REACTIONS (4)
  - Blood pressure increased [Recovered/Resolved]
  - Musculoskeletal discomfort [Unknown]
  - Flushing [Unknown]
  - Myalgia [Unknown]
